FAERS Safety Report 25930137 (Version 1)
Quarter: 2025Q4

REPORT INFORMATION
  Report Type: Spontaneous
  Country: EU (occurrence: EU)
  Receive Date: 20251016
  Receipt Date: 20251016
  Transmission Date: 20260119
  Serious: Yes (Hospitalization, Disabling, Other)
  Sender: MERCK SHARP & DOHME LLC
  Company Number: None

PATIENT
  Age: 71 Year
  Sex: Female
  Weight: 82.6 kg

DRUGS (23)
  1. KEYTRUDA [Suspect]
     Active Substance: PEMBROLIZUMAB
     Indication: Clear cell renal cell carcinoma
     Dosage: C3
     Route: 042
     Dates: start: 20250207, end: 20250207
  2. KEYTRUDA [Suspect]
     Active Substance: PEMBROLIZUMAB
     Indication: Clear cell renal cell carcinoma
     Dosage: C1
     Route: 042
     Dates: start: 20241227, end: 20241227
  3. KEYTRUDA [Suspect]
     Active Substance: PEMBROLIZUMAB
     Indication: Clear cell renal cell carcinoma
     Dosage: C7
     Route: 042
     Dates: start: 20250729, end: 20250729
  4. KEYTRUDA [Suspect]
     Active Substance: PEMBROLIZUMAB
     Indication: Clear cell renal cell carcinoma
     Dosage: C9
     Route: 042
     Dates: start: 20250909, end: 20250909
  5. KEYTRUDA [Suspect]
     Active Substance: PEMBROLIZUMAB
     Indication: Clear cell renal cell carcinoma
     Dosage: C8
     Route: 042
     Dates: start: 20250819, end: 20250819
  6. KEYTRUDA [Suspect]
     Active Substance: PEMBROLIZUMAB
     Indication: Clear cell renal cell carcinoma
     Dosage: C4
     Route: 042
     Dates: start: 20250304, end: 20250304
  7. KEYTRUDA [Suspect]
     Active Substance: PEMBROLIZUMAB
     Indication: Clear cell renal cell carcinoma
     Dosage: C10
     Route: 042
     Dates: start: 20250930, end: 20250930
  8. KEYTRUDA [Suspect]
     Active Substance: PEMBROLIZUMAB
     Indication: Clear cell renal cell carcinoma
     Dosage: C2
     Route: 042
     Dates: start: 20250117, end: 20250117
  9. KEYTRUDA [Suspect]
     Active Substance: PEMBROLIZUMAB
     Indication: Clear cell renal cell carcinoma
     Dosage: C6
     Route: 042
     Dates: start: 20250415, end: 20250415
  10. KEYTRUDA [Suspect]
     Active Substance: PEMBROLIZUMAB
     Indication: Clear cell renal cell carcinoma
     Dosage: C5
     Route: 042
     Dates: start: 20250325, end: 20250325
  11. LERCAPRESS 20 mg/10 mg, FILM-COATED TABLET [Concomitant]
     Indication: Hypertension
     Route: 048
  12. AXITINIB [Suspect]
     Active Substance: AXITINIB
     Indication: Clear cell renal cell carcinoma
     Route: 048
     Dates: start: 20250729, end: 20250905
  13. AXITINIB [Suspect]
     Active Substance: AXITINIB
     Indication: Clear cell renal cell carcinoma
     Route: 048
     Dates: start: 20250913
  14. AXITINIB [Suspect]
     Active Substance: AXITINIB
     Indication: Clear cell renal cell carcinoma
     Route: 048
     Dates: start: 20250708, end: 20250729
  15. AXITINIB [Suspect]
     Active Substance: AXITINIB
     Indication: Clear cell renal cell carcinoma
     Route: 048
     Dates: start: 20241227, end: 20250425
  16. EZETIMIBE [Concomitant]
     Active Substance: EZETIMIBE
     Indication: Dyslipidaemia
     Route: 048
  17. PARKINANE L P 5 mg, extended-release capsule [Concomitant]
     Indication: Parkinsonism
     Route: 048
  18. FLUOXETINE (HYDROCHLORIDE) [Concomitant]
     Indication: Schizophrenia
     Route: 048
  19. TIMOFEROL, capsule [Concomitant]
     Indication: Mineral supplementation
     Route: 048
  20. ABILIFY 30 mg, tablet [Concomitant]
     Indication: Schizophrenia
     Route: 048
  21. LIPANTHYL 160 mg, film-coated tablet [Concomitant]
     Indication: Dyslipidaemia
     Route: 048
  22. METFORMIN [Concomitant]
     Active Substance: METFORMIN HYDROCHLORIDE
     Indication: Type 2 diabetes mellitus
     Route: 048
  23. FOLIC ACID [Concomitant]
     Active Substance: FOLIC ACID
     Indication: Vitamin supplementation
     Route: 048

REACTIONS (3)
  - Renal tubular necrosis [Recovered/Resolved]
  - Thyroiditis [Recovered/Resolved with Sequelae]
  - Palmar-plantar erythrodysaesthesia syndrome [Recovered/Resolved]

NARRATIVE: CASE EVENT DATE: 20250303
